FAERS Safety Report 18363169 (Version 2)
Quarter: 2020Q4

REPORT INFORMATION
  Report Type: Not Available
  Country: US (occurrence: US)
  Receive Date: 20201008
  Receipt Date: 20201104
  Transmission Date: 20210114
  Serious: No
  Sender: FDA-Public Use
  Company Number: US-NEUROCRINE BIOSCIENCES INC.-2020NBI03517

PATIENT
  Age: 73 Year
  Sex: Female
  Weight: 86.26 kg

DRUGS (14)
  1. VITAMIN D [Concomitant]
     Active Substance: VITAMIN D NOS
  2. SYNTHROID [Concomitant]
     Active Substance: LEVOTHYROXINE SODIUM
     Dosage: MORNING ON EMPTY STOMACH
  3. LUTINE [Concomitant]
     Route: 048
  4. INGREZZA [Suspect]
     Active Substance: VALBENAZINE
     Route: 048
     Dates: end: 20200923
  5. OMEGA 3 [Concomitant]
     Active Substance: OMEGA-3 FATTY ACIDS
  6. INGREZZA [Suspect]
     Active Substance: VALBENAZINE
     Route: 048
     Dates: start: 20200319
  7. LEXAPRO [Concomitant]
     Active Substance: ESCITALOPRAM OXALATE
     Route: 048
  8. PROLINE [Concomitant]
     Active Substance: PROLINE
     Dosage: SOLUTION PREFILLED IN SYRINGE
  9. RANEXA [Concomitant]
     Active Substance: RANOLAZINE
     Dosage: EXTENDED RELEASE
  10. INGREZZA [Suspect]
     Active Substance: VALBENAZINE
     Indication: TARDIVE DYSKINESIA
     Route: 048
     Dates: start: 20200311, end: 20200318
  11. PREMARIN [Concomitant]
     Active Substance: ESTROGENS, CONJUGATED
     Dosage: 0.625MG/GM, CREAM VAGINAL
  12. CALCIUM [Concomitant]
     Active Substance: CALCIUM
     Route: 048
  13. LIPITOR [Concomitant]
     Active Substance: ATORVASTATIN CALCIUM
     Route: 048
  14. XARELTO [Concomitant]
     Active Substance: RIVAROXABAN
     Route: 048

REACTIONS (3)
  - Bradykinesia [Unknown]
  - Therapeutic product effect incomplete [Unknown]
  - Postural tremor [Unknown]
